FAERS Safety Report 7661142-0 (Version None)
Quarter: 2011Q3

REPORT INFORMATION
  Report Type: 
  Country: None (occurrence: None)
  Receive Date: 20110805
  Receipt Date: 20100930
  Transmission Date: 20111222
  Serious: No
  Sender: FDA-Public Use
  Company Number: US-ABBOTT-10P-163-0675357-00

PATIENT
  Sex: Female
  Weight: 78.996 kg

DRUGS (17)
  1. SIMVASTATIN [Suspect]
     Indication: ARTERIOSCLEROSIS
     Dosage: AT BEDTIME
     Route: 048
  2. ASPIRIN [Concomitant]
     Indication: PRODUCT USED FOR UNKNOWN INDICATION
     Dosage: HALF HOUR BEFORE NIASPAN
     Route: 048
  3. CALCIUM ACETATE [Concomitant]
     Indication: PRODUCT USED FOR UNKNOWN INDICATION
     Dosage: THREE TIMES WEEKLY WITH VITAMIN D
  4. COQ10 [Concomitant]
     Indication: PRODUCT USED FOR UNKNOWN INDICATION
  5. NIASPAN [Suspect]
     Indication: BLOOD CHOLESTEROL INCREASED
     Route: 048
  6. XYZAL [Concomitant]
     Indication: ASTHMA
  7. ALIGN [Concomitant]
     Indication: GASTRIC DISORDER
  8. ZANTAC [Concomitant]
     Indication: GASTRIC DISORDER
  9. ALLERGY SHOTS [Concomitant]
     Indication: HYPERSENSITIVITY
  10. RENEXA [Concomitant]
     Indication: PRODUCT USED FOR UNKNOWN INDICATION
  11. FUROSEMIDE [Concomitant]
     Indication: PRODUCT USED FOR UNKNOWN INDICATION
  12. ZOLPIDEM [Concomitant]
     Indication: PRODUCT USED FOR UNKNOWN INDICATION
  13. NASONEX [Concomitant]
     Indication: HYPERSENSITIVITY
     Route: 045
  14. ALBUTEROL SULFATE AUTOHALER [Concomitant]
     Indication: PRODUCT USED FOR UNKNOWN INDICATION
     Route: 055
  15. XOPENEX [Concomitant]
     Indication: ASTHMA
     Route: 055
  16. POTASSIUM [Concomitant]
     Indication: PRODUCT USED FOR UNKNOWN INDICATION
  17. VITAMIN D [Concomitant]
     Indication: PRODUCT USED FOR UNKNOWN INDICATION
     Dosage: THREE TIMES WEEKLY WITH CALCIUM

REACTIONS (1)
  - MUSCLE SPASMS [None]
